FAERS Safety Report 13247324 (Version 1)
Quarter: 2017Q1

REPORT INFORMATION
  Report Type: Spontaneous
  Country: US (occurrence: US)
  Receive Date: 20170217
  Receipt Date: 20170217
  Transmission Date: 20170428
  Serious: No
  Sender: FDA-Public Use
  Company Number: US-MALLINCKRODT-T201601153

PATIENT
  Age: 52 Year
  Sex: Female

DRUGS (13)
  1. HEPARIN [Concomitant]
     Active Substance: HEPARIN SODIUM
  2. PREDNISONE. [Concomitant]
     Active Substance: PREDNISONE
  3. INOMAX [Suspect]
     Active Substance: NITRIC OXIDE
     Indication: MYOCARDIAL STRAIN
  4. CIPROFLOXACIN. [Concomitant]
     Active Substance: CIPROFLOXACIN
     Indication: URINARY TRACT INFECTION
  5. INOMAX [Suspect]
     Active Substance: NITRIC OXIDE
     Indication: DECREASED VENTRICULAR AFTERLOAD
     Dosage: UNKNOWN DOSE/INFUSION RATE
  6. NOREPINEPHRINE [Concomitant]
     Active Substance: NOREPINEPHRINE\NOREPINEPHRINE BITARTRATE
  7. RED BLOOD CELLS [Concomitant]
     Active Substance: HUMAN RED BLOOD CELL
     Indication: ANAEMIA
     Dosage: UNK
     Route: 042
  8. CORTICOSTEROID NOS [Concomitant]
     Active Substance: CORTICOSTEROID NOS
     Route: 042
  9. OXYGEN. [Concomitant]
     Active Substance: OXYGEN
  10. RIVAROXABAN [Concomitant]
     Active Substance: RIVAROXABAN
     Indication: ANTICOAGULANT THERAPY
     Route: 048
  11. INOMAX [Suspect]
     Active Substance: NITRIC OXIDE
     Indication: HYPOXIA
  12. PYRIDIUM [Concomitant]
     Active Substance: PHENAZOPYRIDINE
     Indication: URINARY TRACT INFECTION
  13. IMMUNOGLOBULIN G HUMAN [Concomitant]
     Active Substance: HUMAN IMMUNOGLOBULIN G
     Indication: HAEMOLYTIC ANAEMIA

REACTIONS (2)
  - Off label use [Unknown]
  - No adverse event [Unknown]
